FAERS Safety Report 13678698 (Version 2)
Quarter: 2018Q1

REPORT INFORMATION
  Report Type: Spontaneous
  Country: US (occurrence: US)
  Receive Date: 20170622
  Receipt Date: 20180124
  Transmission Date: 20180508
  Serious: Yes (Other)
  Sender: FDA-Public Use
  Company Number: US-SA-2017SA017688

PATIENT
  Sex: Male
  Weight: 50.34 kg

DRUGS (20)
  1. HUMALOG [Concomitant]
     Active Substance: INSULIN LISPRO
     Dosage: AS DIRECTED
     Route: 058
     Dates: start: 20161213
  2. IBUPROFEN. [Concomitant]
     Active Substance: IBUPROFEN
     Dosage: EVERY 4-6 HOURS
     Route: 048
     Dates: start: 20170329
  3. CEREZYME [Suspect]
     Active Substance: IMIGLUCERASE
     Indication: GAUCHER^S DISEASE
     Dosage: DOSE:55.62 UNIT(S)/KILOGRAM BODYWEIGHT
     Route: 041
     Dates: start: 20131219
  4. CEREZYME [Suspect]
     Active Substance: IMIGLUCERASE
     Indication: LIPIDOSIS
     Dosage: DOSE:55.62 UNIT(S)/KILOGRAM BODYWEIGHT
     Route: 041
     Dates: start: 20131219
  5. CEREZYME [Suspect]
     Active Substance: IMIGLUCERASE
     Indication: LIPIDOSIS
     Dosage: DOSE:64.14 UNIT(S)/KILOGRAM BODYWEIGHT
     Route: 041
  6. HEPARIN [Concomitant]
     Active Substance: HEPARIN SODIUM
     Indication: FLUSHING
     Dosage: DOSE: 100 UN/ML
     Route: 042
     Dates: start: 20170421
  7. NORMAL SALINE [Concomitant]
     Active Substance: SODIUM CHLORIDE
     Indication: FLUSHING
     Route: 042
     Dates: start: 20170421
  8. TAMIFLU [Concomitant]
     Active Substance: OSELTAMIVIR PHOSPHATE
     Route: 048
     Dates: start: 20170329
  9. ACETAMINOPHEN. [Concomitant]
     Active Substance: ACETAMINOPHEN
     Indication: PREMEDICATION
     Route: 048
     Dates: start: 20170421
  10. ZYRTEC [Concomitant]
     Active Substance: CETIRIZINE HYDROCHLORIDE
     Route: 048
     Dates: start: 20170329
  11. DIPHENHYDRAMINE. [Concomitant]
     Active Substance: DIPHENHYDRAMINE
     Indication: ANAPHYLACTIC REACTION
     Dosage: DOSE:2.5 MILLIGRAM(S)/MILLILITRE
     Route: 042
     Dates: start: 20170421
  12. LIDOCAINE/PRILOCAINE [Concomitant]
     Indication: PREMEDICATION
     Route: 061
     Dates: start: 20170421
  13. L-M-X [Concomitant]
     Indication: PREMEDICATION
     Route: 061
     Dates: start: 20170421
  14. LEXAPRO [Concomitant]
     Active Substance: ESCITALOPRAM OXALATE
     Route: 048
     Dates: start: 20161212
  15. FLONASE [Concomitant]
     Active Substance: FLUTICASONE PROPIONATE
     Dosage: DOSE: 2 SPRAYS
     Route: 055
     Dates: start: 20170515
  16. CEREZYME [Suspect]
     Active Substance: IMIGLUCERASE
     Indication: GAUCHER^S DISEASE
     Dosage: DOSE:64.14 UNIT(S)/KILOGRAM BODYWEIGHT
     Route: 041
  17. LANTUS [Concomitant]
     Active Substance: INSULIN GLARGINE
     Dosage: SUCBUT EVERY EVENING
     Route: 058
     Dates: start: 20170426
  18. CEREZYME [Suspect]
     Active Substance: IMIGLUCERASE
     Indication: GAUCHER^S DISEASE
     Dosage: DOSE:55.62 UNIT(S)/KILOGRAM BODYWEIGHT
     Route: 041
     Dates: start: 20131219
  19. CEREZYME [Suspect]
     Active Substance: IMIGLUCERASE
     Indication: LIPIDOSIS
     Dosage: DOSE:55.62 UNIT(S)/KILOGRAM BODYWEIGHT
     Route: 041
     Dates: start: 20131219
  20. EPIPEN [Concomitant]
     Active Substance: EPINEPHRINE
     Indication: ANAPHYLACTIC REACTION
     Route: 030
     Dates: start: 20170421

REACTIONS (2)
  - Hand fracture [Unknown]
  - Headache [Recovered/Resolved]

NARRATIVE: CASE EVENT DATE: 201712
